FAERS Safety Report 15434843 (Version 1)
Quarter: 2018Q3

REPORT INFORMATION
  Report Type: Spontaneous
  Country: FR (occurrence: FR)
  Receive Date: 20180927
  Receipt Date: 20180927
  Transmission Date: 20181010
  Serious: Yes (Hospitalization, Other)
  Sender: FDA-Public Use
  Company Number: PHHY2018FR108413

PATIENT
  Age: 75 Year
  Sex: Male

DRUGS (1)
  1. ARGANOVA [Suspect]
     Active Substance: ARGATROBAN
     Indication: HEPARIN-INDUCED THROMBOCYTOPENIA
     Dosage: 100MG/ML 250MG/2.5 ML
     Route: 041
     Dates: start: 20180907, end: 20180907

REACTIONS (4)
  - Activated partial thromboplastin time prolonged [Unknown]
  - Coagulation factor V level decreased [Unknown]
  - Prothrombin level decreased [Unknown]
  - Product preparation error [Unknown]

NARRATIVE: CASE EVENT DATE: 20180907
